FAERS Safety Report 26160584 (Version 1)
Quarter: 2025Q4

REPORT INFORMATION
  Report Type: Report from Study
  Country: US (occurrence: US)
  Receive Date: 20251216
  Receipt Date: 20251216
  Transmission Date: 20260118
  Serious: Yes (Hospitalization, Other)
  Sender: VERONA PHARMA
  Company Number: US-VERONA PHARMA-VER-011183

PATIENT
  Sex: Male

DRUGS (1)
  1. OHTUVAYRE [Suspect]
     Active Substance: ENSIFENTRINE
     Indication: Chronic obstructive pulmonary disease
     Dosage: UNK
     Dates: start: 20251117, end: 20251121

REACTIONS (3)
  - Pneumonia [Unknown]
  - Arrhythmia [Unknown]
  - Haematuria [Unknown]

NARRATIVE: CASE EVENT DATE: 20250101
